FAERS Safety Report 5332755-6 (Version None)
Quarter: 2007Q2

REPORT INFORMATION
  Report Type: 
  Country: None (occurrence: None)
  Receive Date: 20070523
  Receipt Date: 20070521
  Transmission Date: 20071010
  Serious: Yes (Hospitalization)
  Sender: FDA-Public Use
  Company Number: SE-MERCK-0705SWE00024

PATIENT
  Age: 58 Year
  Sex: Male

DRUGS (3)
  1. COZAAR [Suspect]
     Indication: ESSENTIAL HYPERTENSION
     Route: 048
     Dates: start: 20040101, end: 20060508
  2. [THERAPY UNSPECIFIED] [Suspect]
     Indication: HYPERLIPIDAEMIA
     Route: 048
     Dates: start: 20040101, end: 20060508
  3. [THERAPY UNSPECIFIED] [Suspect]
     Indication: HYPERTRIGLYCERIDAEMIA
     Route: 048
     Dates: start: 20040101, end: 20060508

REACTIONS (2)
  - ANGIOEDEMA [None]
  - RASH [None]
